FAERS Safety Report 5904677-0 (Version None)
Quarter: 2008Q4

REPORT INFORMATION
  Report Type: 
  Country: None (occurrence: None)
  Receive Date: 20081001
  Receipt Date: 20071120
  Transmission Date: 20090506
  Serious: No
  Sender: FDA-Public Use
  Company Number: DE-JNJFOC-20080802778

PATIENT
  Sex: Female

DRUGS (4)
  1. ZALDIAR [Suspect]
     Route: 048
  2. ZALDIAR [Suspect]
     Indication: DRUG USE FOR UNKNOWN INDICATION
     Route: 048
  3. NEXIUM [Concomitant]
     Route: 065
  4. AZOPT [Concomitant]
     Indication: INTRAOCULAR PRESSURE INCREASED
     Route: 047

REACTIONS (1)
  - INTRAOCULAR PRESSURE INCREASED [None]
